FAERS Safety Report 20069248 (Version 1)
Quarter: 2021Q4

REPORT INFORMATION
  Report Type: Spontaneous
  Country: US (occurrence: US)
  Receive Date: 20211115
  Receipt Date: 20211115
  Transmission Date: 20220303
  Serious: Yes (Other)
  Sender: FDA-Public Use
  Company Number: US-PFIZER INC-202101549219

PATIENT
  Age: 85 Year
  Sex: Male

DRUGS (3)
  1. TOZINAMERAN [Suspect]
     Active Substance: TOZINAMERAN
     Indication: COVID-19 immunisation
     Dosage: DOSE 1, SINGLE
  2. TOZINAMERAN [Suspect]
     Active Substance: TOZINAMERAN
     Dosage: DOSE 2, SINGLE
  3. TAFAMIDIS [Suspect]
     Active Substance: TAFAMIDIS
     Dosage: 61 MG

REACTIONS (6)
  - Neuropathy peripheral [Unknown]
  - Constipation [Unknown]
  - Weight increased [Unknown]
  - Muscular weakness [Unknown]
  - Spinal claudication [Unknown]
  - Oedema peripheral [Unknown]
